FAERS Safety Report 5754983-8 (Version None)
Quarter: 2008Q2

REPORT INFORMATION
  Report Type: 
  Country: None (occurrence: None)
  Receive Date: 20080602
  Receipt Date: 20080520
  Transmission Date: 20081010
  Serious: Yes (Other)
  Sender: FDA-Public Use
  Company Number: US-ELI_LILLY_AND_COMPANY-US200805004548

PATIENT
  Age: 55 Year
  Sex: Male

DRUGS (3)
  1. ZYPREXA [Suspect]
     Indication: BIPOLAR DISORDER
     Dosage: 10 MG, UNK
  2. DEPAKOTE [Concomitant]
  3. LITHIUM CARBONATE [Concomitant]

REACTIONS (1)
  - RENAL FAILURE CHRONIC [None]
